FAERS Safety Report 9445066 (Version 1)
Quarter: 2013Q3

REPORT INFORMATION
  Report Type: Spontaneous
  Country: US (occurrence: US)
  Receive Date: 20130807
  Receipt Date: 20130807
  Transmission Date: 20140515
  Serious: No
  Sender: FDA-Public Use
  Company Number: US-TEVA-423220USA

PATIENT
  Age: 38 Year
  Sex: Female
  Weight: 62.65 kg

DRUGS (4)
  1. PARAGARD 380A [Suspect]
     Indication: CONTRACEPTION
     Route: 015
     Dates: start: 20130617, end: 20130724
  2. PRENATAL VITAMINS [Concomitant]
     Indication: VITAMIN SUPPLEMENTATION
  3. VITAMIN D [Concomitant]
     Indication: VITAMIN SUPPLEMENTATION
  4. VIIBRYD [Concomitant]

REACTIONS (1)
  - Device expulsion [Recovered/Resolved]
